FAERS Safety Report 10784344 (Version 1)
Quarter: 2015Q1

REPORT INFORMATION
  Report Type: Spontaneous
  Country: US (occurrence: None)
  Receive Date: 20150209
  Receipt Date: 20150209
  Transmission Date: 20150721
  Serious: No
  Sender: FDA-Public Use
  Company Number: None

PATIENT
  Age: 58 Year
  Sex: Female
  Weight: 88.91 kg

DRUGS (1)
  1. OXYCODONE [Suspect]
     Active Substance: OXYCODONE
     Indication: PAIN
     Dosage: 1 EVERY 4-6 HRS TAKEN BY MOUTH
     Route: 048

REACTIONS (3)
  - Drug effect decreased [None]
  - Intervertebral disc degeneration [None]
  - Product quality issue [None]

NARRATIVE: CASE EVENT DATE: 20150202
